FAERS Safety Report 6745723-4 (Version None)
Quarter: 2010Q2

REPORT INFORMATION
  Report Type: 
  Country: None (occurrence: None)
  Receive Date: 20100528
  Receipt Date: 20100519
  Transmission Date: 20101027
  Serious: Yes (Life-Threatening, Hospitalization)
  Sender: FDA-Public Use
  Company Number: US-KINGPHARMUSA00001-K201000626

PATIENT
  Sex: Female
  Weight: 76.19 kg

DRUGS (2)
  1. TAPAZOLE [Suspect]
     Indication: BASEDOW'S DISEASE
     Dosage: UNK
     Route: 048
     Dates: start: 20000922, end: 20001001
  2. LISINOPRIL [Concomitant]

REACTIONS (5)
  - HEART RATE INCREASED [None]
  - HYPERSENSITIVITY [None]
  - OEDEMA PERIPHERAL [None]
  - RASH GENERALISED [None]
  - SKIN DISCOLOURATION [None]
